FAERS Safety Report 6211290-7 (Version None)
Quarter: 2009Q2

REPORT INFORMATION
  Report Type: 
  Country: None (occurrence: None)
  Receive Date: 20090602
  Receipt Date: 20090521
  Transmission Date: 20091009
  Serious: Yes (Other)
  Sender: FDA-Public Use
  Company Number: ZA-JNJFOC-20090505399

PATIENT
  Age: 65 Year
  Sex: Female

DRUGS (1)
  1. TRISPORAL [Suspect]
     Indication: ORAL CANDIDIASIS
     Route: 048

REACTIONS (1)
  - CHOLESTASIS [None]
